FAERS Safety Report 20006646 (Version 1)
Quarter: 2021Q4

REPORT INFORMATION
  Report Type: Spontaneous
  Country: FI (occurrence: FI)
  Receive Date: 20211028
  Receipt Date: 20211028
  Transmission Date: 20220304
  Serious: Yes (Hospitalization, Other)
  Sender: FDA-Public Use
  Company Number: FI-MYLANLABS-2021M1067924

PATIENT
  Sex: Male

DRUGS (1)
  1. CLOZAPINE [Suspect]
     Active Substance: CLOZAPINE
     Indication: Cyclothymic disorder
     Dosage: UNK
     Dates: start: 20041025

REACTIONS (30)
  - Off label use [Unknown]
  - Syncope [Unknown]
  - Altered state of consciousness [Unknown]
  - Paralysis [Unknown]
  - Major depression [Unknown]
  - Epilepsy [Unknown]
  - Mental impairment [Unknown]
  - Feeling abnormal [Unknown]
  - Anxiety [Unknown]
  - Apathy [Unknown]
  - Gait disturbance [Unknown]
  - Muscular weakness [Unknown]
  - Tremor [Unknown]
  - Sensory loss [Unknown]
  - Hypoaesthesia [Unknown]
  - Pain [Unknown]
  - Fear of death [Unknown]
  - Hypervigilance [Unknown]
  - Pain in extremity [Unknown]
  - Agnosia [Unknown]
  - Restless legs syndrome [Unknown]
  - Depression [Unknown]
  - Headache [Unknown]
  - Dyspnoea [Unknown]
  - Chest pain [Unknown]
  - Chest discomfort [Unknown]
  - Dizziness [Unknown]
  - Nausea [Unknown]
  - Fatigue [Unknown]
  - Dehydration [Unknown]

NARRATIVE: CASE EVENT DATE: 20041025
